FAERS Safety Report 8435586-3 (Version None)
Quarter: 2012Q2

REPORT INFORMATION
  Report Type: 
  Country: None (occurrence: None)
  Receive Date: 20120608
  Receipt Date: 20120531
  Transmission Date: 20120825
  Serious: Yes (Hospitalization)
  Sender: FDA-Public Use
  Company Number: 2012SP017865

PATIENT
  Age: 66 Year
  Sex: Female
  Weight: 53 kg

DRUGS (8)
  1. TELAVIC (ANTIVIRALS NOS) [Suspect]
     Indication: HEPATITIS C
     Dosage: 2250 MG;QD;PO 1500 MG;QD;PO 1000 MG;QD;PO
     Route: 048
     Dates: start: 20120207, end: 20120220
  2. TELAVIC (ANTIVIRALS NOS) [Suspect]
     Indication: HEPATITIS C
     Dosage: 2250 MG;QD;PO 1500 MG;QD;PO 1000 MG;QD;PO
     Route: 048
     Dates: start: 20120306
  3. TELAVIC (ANTIVIRALS NOS) [Suspect]
     Indication: HEPATITIS C
     Dosage: 2250 MG;QD;PO 1500 MG;QD;PO 1000 MG;QD;PO
     Route: 048
     Dates: start: 20120221, end: 20120305
  4. TELAVIC (ANTIVIRALS NOS) [Suspect]
     Indication: HEPATITIS C
     Dosage: 2250 MG;QD;PO 1500 MG;QD;PO 1000 MG;QD;PO
     Route: 048
     Dates: start: 20120427
  5. CEFMETAZOLE SODIUM [Concomitant]
  6. RIBAVIRIN [Suspect]
     Indication: HEPATITIS C
     Dosage: 600 MG;QD;PO 200 MG;QD;PO
     Route: 048
     Dates: start: 20120306
  7. RIBAVIRIN [Suspect]
     Indication: HEPATITIS C
     Dosage: 600 MG;QD;PO 200 MG;QD;PO
     Route: 048
     Dates: start: 20120207, end: 20120305
  8. PEG-INTRON [Suspect]
     Indication: HEPATITIS C
     Dosage: 1.5 MCG/KG;QW;SC
     Route: 058
     Dates: start: 20120207

REACTIONS (4)
  - CHOLECYSTECTOMY [None]
  - NAUSEA [None]
  - ANAEMIA [None]
  - CHOLECYSTITIS ACUTE [None]
